FAERS Safety Report 6132043-4 (Version None)
Quarter: 2009Q1

REPORT INFORMATION
  Report Type: 
  Country: None (occurrence: None)
  Receive Date: 20090325
  Receipt Date: 20090313
  Transmission Date: 20090719
  Serious: Yes (Hospitalization, Other)
  Sender: FDA-Public Use
  Company Number: JP-PFIZER INC-2009184145

PATIENT

DRUGS (7)
  1. RIFABUTIN [Suspect]
     Indication: MYCOBACTERIUM AVIUM COMPLEX INFECTION
     Dosage: 300 MG, 1X/DAY
     Route: 048
     Dates: start: 20081024
  2. KLARICID [Concomitant]
  3. ETHAMBUTOL DIHYDROCHLORIDE [Concomitant]
     Dates: start: 20081025, end: 20081109
  4. STREPTOMYCIN SULFATE [Concomitant]
     Dates: start: 20081025
  5. MAG-LAX [Concomitant]
     Dates: start: 20081025
  6. CRESTOR [Concomitant]
     Dates: start: 20081025
  7. RHYTHMY [Concomitant]
     Dates: start: 20081101

REACTIONS (2)
  - LIVER DISORDER [None]
  - VISUAL ACUITY REDUCED [None]
